FAERS Safety Report 14517428 (Version 1)
Quarter: 2018Q1

REPORT INFORMATION
  Report Type: Spontaneous
  Country: CN (occurrence: CN)
  Receive Date: 20180212
  Receipt Date: 20180212
  Transmission Date: 20180509
  Serious: Yes (Other)
  Sender: FDA-Public Use
  Company Number: CN-009507513-1802CHN002351

PATIENT
  Age: 17 Year
  Sex: Female

DRUGS (1)
  1. PEMBROLIZUMAB. [Suspect]
     Active Substance: PEMBROLIZUMAB
     Indication: NATURAL KILLER-CELL LYMPHOBLASTIC LYMPHOMA
     Dosage: 100 MG, Q3W

REACTIONS (4)
  - Pneumonitis [Unknown]
  - Malignant neoplasm progression [Unknown]
  - Off label use [Unknown]
  - Respiratory failure [Unknown]
